FAERS Safety Report 17686191 (Version 1)
Quarter: 2020Q2

REPORT INFORMATION
  Report Type: Spontaneous
  Country: KR (occurrence: KR)
  Receive Date: 20200420
  Receipt Date: 20200420
  Transmission Date: 20200714
  Serious: No
  Sender: FDA-Public Use
  Company Number: KR-TOLMAR, INC.-19KR019667

PATIENT

DRUGS (1)
  1. ELIGARD [Suspect]
     Active Substance: LEUPROLIDE ACETATE
     Indication: PRODUCT USED FOR UNKNOWN INDICATION
     Dosage: UNK
     Route: 065

REACTIONS (5)
  - Device leakage [None]
  - Syringe issue [None]
  - Intercepted product preparation error [None]
  - Wrong technique in product usage process [None]
  - Occupational exposure to product [Unknown]

NARRATIVE: CASE EVENT DATE: 20191205
